FAERS Safety Report 23154239 (Version 1)
Quarter: 2023Q4

REPORT INFORMATION
  Report Type: Spontaneous
  Country: FR (occurrence: FR)
  Receive Date: 20231107
  Receipt Date: 20231107
  Transmission Date: 20240109
  Serious: Yes (Hospitalization, Disabling)
  Sender: FDA-Public Use
  Company Number: None

PATIENT
  Age: 85 Year
  Sex: Male
  Weight: 58.4 kg

DRUGS (8)
  1. LEVOTHYROXINE [Suspect]
     Active Substance: LEVOTHYROXINE
     Indication: Hypothyroidism
     Route: 048
  2. ATORVASTATIN [Suspect]
     Active Substance: ATORVASTATIN
     Indication: Product used for unknown indication
     Route: 048
  3. ATORVASTATIN [Suspect]
     Active Substance: ATORVASTATIN
     Dosage: DOSAGE INCREASED.
  4. SOTALOL [Suspect]
     Active Substance: SOTALOL
     Indication: Product used for unknown indication
     Route: 048
  5. SOTALOL [Suspect]
     Active Substance: SOTALOL
     Dosage: DOSAGE REDUCED
  6. COMIRNATY (TOZINAMERAN) [Suspect]
     Active Substance: TOZINAMERAN
     Indication: COVID-19 immunisation
     Dosage: DISPERSION TO DILUTE FOR INJECTION
     Route: 030
     Dates: start: 20210302, end: 20210330
  7. KARDEGIC [Suspect]
     Active Substance: ASPIRIN DL-LYSINE
     Indication: Cardiovascular event prophylaxis
     Dosage: SACHET DOSE
     Route: 048
  8. KARDEGIC [Suspect]
     Active Substance: ASPIRIN DL-LYSINE
     Dosage: DOSAGE INCREASED

REACTIONS (1)
  - Ischaemic stroke [Recovered/Resolved with Sequelae]

NARRATIVE: CASE EVENT DATE: 20210626
